FAERS Safety Report 7263315-8 (Version None)
Quarter: 2011Q1

REPORT INFORMATION
  Report Type: 
  Country: None (occurrence: None)
  Receive Date: 20110130
  Receipt Date: 20101005
  Transmission Date: 20110831
  Serious: No
  Sender: FDA-Public Use
  Company Number: US-ABBOTT-10P-163-0675870-00

PATIENT
  Age: 7 Year
  Sex: Female

DRUGS (4)
  1. COLCHICINE [Concomitant]
     Indication: PRODUCT USED FOR UNKNOWN INDICATION
     Dosage: EVERY MORNING AND NIGHT
     Route: 048
  2. HUMIRA [Suspect]
     Indication: BRUCELLOSIS
     Dates: start: 20100331
  3. GENERIC OTC SLEEPING PILL [Concomitant]
     Indication: PRODUCT USED FOR UNKNOWN INDICATION
     Dosage: AT BEDTIME
  4. LYRICA [Concomitant]
     Indication: PRODUCT USED FOR UNKNOWN INDICATION
     Dosage: DAILY
     Route: 048

REACTIONS (6)
  - PAIN [None]
  - NAUSEA [None]
  - VOMITING [None]
  - CHEST PAIN [None]
  - INJECTION SITE PAIN [None]
  - DYSPNOEA [None]
